FAERS Safety Report 9856742 (Version 1)
Quarter: 2014Q1

REPORT INFORMATION
  Report Type: Spontaneous
  Country: IT (occurrence: IT)
  Receive Date: 20140130
  Receipt Date: 20140130
  Transmission Date: 20141002
  Serious: Yes (Other)
  Sender: FDA-Public Use
  Company Number: IT-GLAXOSMITHKLINE-B0964534A

PATIENT
  Age: 47 Year
  Sex: Female

DRUGS (2)
  1. TYVERB [Suspect]
     Indication: BREAST CANCER
     Route: 048
     Dates: start: 20131014, end: 20140116
  2. CAELYX [Suspect]
     Indication: BREAST CANCER
     Route: 042
     Dates: start: 20131014, end: 20140116

REACTIONS (2)
  - Skin toxicity [Unknown]
  - Skin erosion [Unknown]
